FAERS Safety Report 23531274 (Version 2)
Quarter: 2024Q1

REPORT INFORMATION
  Report Type: Report from Study
  Country: US (occurrence: US)
  Receive Date: 20240216
  Receipt Date: 20240313
  Transmission Date: 20240409
  Serious: Yes (Life-Threatening, Other)
  Sender: FDA-Public Use
  Company Number: US-UCBSA-2024006535

PATIENT
  Age: 73 Year
  Sex: Male
  Weight: 93 kg

DRUGS (2)
  1. LACOSAMIDE [Suspect]
     Active Substance: LACOSAMIDE
     Indication: Seizure
     Dosage: 200 MILLIGRAM, 2X/DAY (BID)
     Dates: start: 2014
  2. IMFINZI [Concomitant]
     Active Substance: DURVALUMAB
     Indication: Product used for unknown indication
     Dosage: UNK, EV 4 WEEKS
     Route: 042
     Dates: start: 20240108

REACTIONS (1)
  - Lung neoplasm malignant [Not Recovered/Not Resolved]

NARRATIVE: CASE EVENT DATE: 20231101
